FAERS Safety Report 14830113 (Version 2)
Quarter: 2018Q4

REPORT INFORMATION
  Report Type: Report from Study
  Country: US (occurrence: US)
  Receive Date: 20180430
  Receipt Date: 20181210
  Transmission Date: 20190204
  Serious: Yes (Hospitalization)
  Sender: FDA-Public Use
  Company Number: US-ACTELION-A-NJ2018-171306

PATIENT
  Age: 81 Year
  Sex: Male
  Weight: 75.74 kg

DRUGS (1)
  1. OPSUMIT [Suspect]
     Active Substance: MACITENTAN
     Indication: PULMONARY ARTERIAL HYPERTENSION
     Dosage: 10 MG, QD
     Route: 048

REACTIONS (6)
  - Dry skin [Unknown]
  - Cardiac failure congestive [Unknown]
  - Pneumonia [Unknown]
  - Hypertension [Unknown]
  - Pruritus [Unknown]
  - Dyspnoea [Unknown]
